FAERS Safety Report 4860576-7 (Version None)
Quarter: 2005Q4

REPORT INFORMATION
  Report Type: 
  Country: None (occurrence: None)
  Receive Date: 20051219
  Receipt Date: 20050112
  Transmission Date: 20060501
  Serious: Yes (Death, Disabling, Other)
  Sender: FDA-Public Use
  Company Number: US-MERCK-0501USA01217

PATIENT
  Age: 49 Year
  Sex: Female
  Weight: 49 kg

DRUGS (4)
  1. VIOXX [Suspect]
     Indication: ANALGESIC EFFECT
     Route: 048
     Dates: start: 20030301, end: 20040608
  2. ASPIRIN [Concomitant]
     Route: 048
  3. ZOCOR [Concomitant]
     Route: 048
  4. FOSAMAX [Concomitant]
     Route: 065

REACTIONS (6)
  - ADVERSE EVENT [None]
  - ANXIETY [None]
  - ARTERIOSCLEROSIS [None]
  - EMOTIONAL DISTRESS [None]
  - MYOCARDIAL INFARCTION [None]
  - PAIN [None]
